FAERS Safety Report 8487878-X (Version None)
Quarter: 2012Q2

REPORT INFORMATION
  Report Type: 
  Country: None (occurrence: None)
  Receive Date: 20120402
  Receipt Date: 20110601
  Transmission Date: 20120825
  Serious: Yes (Other)
  Sender: FDA-Public Use
  Company Number: PHHY2011US48248

PATIENT

DRUGS (1)
  1. EXFORGE [Suspect]
     Dosage: 320 MG OV VALS AND 5 MG OF AMLO

REACTIONS (4)
  - JOINT SWELLING [None]
  - BLOOD PRESSURE FLUCTUATION [None]
  - OEDEMA PERIPHERAL [None]
  - PAIN [None]
